FAERS Safety Report 16162117 (Version 1)
Quarter: 2019Q2

REPORT INFORMATION
  Report Type: Spontaneous
  Country: NL (occurrence: NL)
  Receive Date: 20190405
  Receipt Date: 20190405
  Transmission Date: 20190711
  Serious: Yes (Other)
  Sender: FDA-Public Use
  Company Number: NL-AUROBINDO-AUR-APL-2019-017812

PATIENT

DRUGS (1)
  1. TRAMADOL HCL [Suspect]
     Active Substance: TRAMADOL HYDROCHLORIDE
     Indication: PAIN
     Dosage: 50 MILLIGRAM, 1-3D1CAPS
     Route: 048
     Dates: start: 20190226, end: 20190305

REACTIONS (1)
  - Anuria [Recovering/Resolving]

NARRATIVE: CASE EVENT DATE: 20190301
